FAERS Safety Report 4421322-4 (Version None)
Quarter: 2004Q3

REPORT INFORMATION
  Report Type: 
  Country: None (occurrence: None)
  Receive Date: 20040804
  Receipt Date: 20040720
  Transmission Date: 20050211
  Serious: Yes (Death)
  Sender: FDA-Public Use
  Company Number: 04P-090-0267886-00

PATIENT
  Age: 48 Year
  Sex: Male
  Weight: 48 kg

DRUGS (8)
  1. BIAXIN [Suspect]
     Indication: DISSEMINATED TUBERCULOSIS
     Dosage: 500 MG, ONCE, INTRAVENOUS
     Route: 042
     Dates: start: 20030422, end: 20030422
  2. ATROPINE [Concomitant]
  3. EPINEPHRINE [Concomitant]
  4. TOBAREX [Concomitant]
  5. FUROSEMIDE [Concomitant]
  6. AMINOPHYLLINE [Concomitant]
  7. SODIUM [Concomitant]
  8. HYDROCORTISONE SODIUM SUCCINATE [Concomitant]

REACTIONS (5)
  - DIABETES MELLITUS [None]
  - DISSEMINATED TUBERCULOSIS [None]
  - METASTATIC NEOPLASM [None]
  - PNEUMONIA [None]
  - RESPIRATORY DISTRESS [None]
